FAERS Safety Report 6240991-X (Version None)
Quarter: 2009Q2

REPORT INFORMATION
  Report Type: 
  Country: None (occurrence: None)
  Receive Date: 20090623
  Receipt Date: 20090616
  Transmission Date: 20091009
  Serious: Yes (Hospitalization)
  Sender: FDA-Public Use
  Company Number: A0792967A

PATIENT
  Age: 92 Year
  Sex: Male

DRUGS (6)
  1. MELPHALAN HYDROCHLORIDE [Suspect]
     Indication: MULTIPLE MYELOMA
     Dates: start: 20080901
  2. THALIDOMIDE [Suspect]
     Indication: MULTIPLE MYELOMA
     Dosage: 100MG PER DAY
     Route: 048
     Dates: start: 20080901, end: 20081201
  3. PREDNISONE [Suspect]
     Indication: MULTIPLE MYELOMA
     Dates: start: 20080901
  4. FUROSEMIDE [Concomitant]
  5. CLONAZEPAM [Concomitant]
  6. ASPIRIN [Concomitant]
     Indication: CORONARY ARTERY DISEASE

REACTIONS (2)
  - DEEP VEIN THROMBOSIS [None]
  - OEDEMA PERIPHERAL [None]
